FAERS Safety Report 6924183-4 (Version None)
Quarter: 2010Q3

REPORT INFORMATION
  Report Type: 
  Country: None (occurrence: None)
  Receive Date: 20100812
  Receipt Date: 20100812
  Transmission Date: 20110219
  Serious: Yes (Hospitalization)
  Sender: FDA-Public Use
  Company Number: None

PATIENT
  Sex: Male
  Weight: 91.7 kg

DRUGS (21)
  1. THALIDOMIDE [Suspect]
     Indication: MYELOFIBROSIS
     Dosage: 50MG EVERY 48 HOURS PO
     Route: 048
     Dates: start: 20090801, end: 20100303
  2. DOCUSATE SODIUM [Concomitant]
  3. SENNA [Concomitant]
  4. BISACODYL [Concomitant]
  5. LANSOPRAZOLE [Concomitant]
  6. METOPROLOL SUCCINATE EXTENDED RELEASE [Concomitant]
  7. LEVOTHYROXINE SODIUM [Concomitant]
  8. BUPROPION HCL [Concomitant]
  9. TUMS [Concomitant]
  10. PREDNISONE [Concomitant]
  11. PAROXETINE [Concomitant]
  12. LEVETIRACETAM [Concomitant]
  13. CEFTRIAXONE [Concomitant]
  14. HEPARIN [Concomitant]
  15. ACETAMINOPHEN [Concomitant]
  16. NYSTATIN [Concomitant]
  17. OXYCODONE [Concomitant]
  18. RANITIDINE [Concomitant]
  19. ONDANSETRON [Concomitant]
  20. FUROSEMIDE [Concomitant]
  21. MORPHINE [Concomitant]

REACTIONS (9)
  - ASTHENIA [None]
  - DYSPNOEA [None]
  - FATIGUE [None]
  - HYPERHIDROSIS [None]
  - LUNG ABSCESS [None]
  - LUNG INFILTRATION [None]
  - PULMONARY MASS [None]
  - PULMONARY NECROSIS [None]
  - RESPIRATORY TRACT INFLAMMATION [None]
